FAERS Safety Report 8551283-8 (Version None)
Quarter: 2012Q3

REPORT INFORMATION
  Report Type: 
  Country: None (occurrence: None)
  Receive Date: 20120730
  Receipt Date: 20120104
  Transmission Date: 20120928
  Serious: No
  Sender: FDA-Public Use
  Company Number: US-ALLERGAN-1200096US

PATIENT
  Sex: Female

DRUGS (3)
  1. LATISSE [Suspect]
     Indication: HYPOTRICHOSIS
     Dosage: 2 GTT, QHS
     Route: 061
     Dates: start: 20110301
  2. BLINK                              /00582501/ [Concomitant]
     Indication: PRODUCT USED FOR UNKNOWN INDICATION
  3. LATISSE [Suspect]
     Indication: MADAROSIS

REACTIONS (3)
  - EXPIRED DRUG ADMINISTERED [None]
  - ERYTHEMA OF EYELID [None]
  - ERYTHEMA [None]
